FAERS Safety Report 15535616 (Version 4)
Quarter: 2021Q4

REPORT INFORMATION
  Report Type: Spontaneous
  Country: US (occurrence: US)
  Receive Date: 20181022
  Receipt Date: 20211215
  Transmission Date: 20220303
  Serious: Yes (Other)
  Sender: FDA-Public Use
  Company Number: US-PFIZER INC-2018424959

PATIENT
  Age: 57 Year
  Sex: Female

DRUGS (1)
  1. XELJANZ XR [Suspect]
     Active Substance: TOFACITINIB CITRATE
     Dosage: 11 MG, 1X/DAY(1 QDAY)

REACTIONS (15)
  - Rheumatoid arthritis [Unknown]
  - Pain in extremity [Not Recovered/Not Resolved]
  - Contusion [Unknown]
  - Arthralgia [Unknown]
  - Hypoaesthesia [Unknown]
  - Dizziness [Unknown]
  - Tremor [Unknown]
  - Illness [Unknown]
  - Upper respiratory tract infection [Unknown]
  - Swelling [Unknown]
  - Pain [Unknown]
  - Anxiety [Unknown]
  - Resting tremor [Unknown]
  - Drug ineffective [Unknown]
  - Gastrointestinal disorder [Unknown]

NARRATIVE: CASE EVENT DATE: 20180401
